FAERS Safety Report 4702491-5 (Version None)
Quarter: 2005Q2

REPORT INFORMATION
  Report Type: 
  Country: None (occurrence: None)
  Receive Date: 20050629
  Receipt Date: 20050620
  Transmission Date: 20051028
  Serious: Yes (Other)
  Sender: FDA-Public Use
  Company Number: IT-JNJFOC-20050605176

PATIENT
  Sex: Female

DRUGS (2)
  1. REMICADE [Suspect]
     Indication: CROHN'S DISEASE
     Route: 042
  2. ISONIAZID [Suspect]
     Indication: CROHN'S DISEASE
     Route: 049

REACTIONS (2)
  - DERMATITIS EXFOLIATIVE GENERALISED [None]
  - PRURITUS [None]
